FAERS Safety Report 10237728 (Version 2)
Quarter: 2014Q2

REPORT INFORMATION
  Report Type: Spontaneous
  Country: ES (occurrence: ES)
  Receive Date: 20140616
  Receipt Date: 20140616
  Transmission Date: 20141212
  Serious: Yes (Other)
  Sender: FDA-Public Use
  Company Number: ES-ACCORD-024225

PATIENT
  Age: 68 Year
  Sex: Male

DRUGS (8)
  1. SIMVASTATIN [Suspect]
     Indication: DYSLIPIDAEMIA
  2. EZETIMIBE [Interacting]
     Indication: DYSLIPIDAEMIA
  3. METFORMIN [Concomitant]
  4. OMEPRAZOLE [Concomitant]
  5. ENALAPRIL [Concomitant]
  6. ASPIRIN [Concomitant]
  7. CARVEDILOL/CARVEDILOL HYDROCHLODRIDE [Concomitant]
  8. EPLERENONE [Concomitant]

REACTIONS (2)
  - Drug interaction [Recovered/Resolved]
  - Renal impairment [Recovered/Resolved]
